FAERS Safety Report 5510685-4 (Version None)
Quarter: 2007Q4

REPORT INFORMATION
  Report Type: 
  Country: None (occurrence: None)
  Receive Date: 20071107
  Receipt Date: 20071024
  Transmission Date: 20080405
  Serious: Yes (Hospitalization)
  Sender: FDA-Public Use
  Company Number: ENC200700182

PATIENT
  Age: 54 Year
  Sex: Female
  Weight: 77.6 kg

DRUGS (13)
  1. ARGATROBAN [Suspect]
     Indication: HEPARIN-INDUCED THROMBOCYTOPENIA
     Dosage: 2 MCG/KG/MIN, INTRAVENOUS
     Route: 042
     Dates: start: 20070101, end: 20071018
  2. ITRACONAZOLE [Suspect]
     Indication: FUNGAL INFECTION
     Dosage: 200 MG, Q 12 HRS, INTRAVENOUS
     Route: 042
     Dates: end: 20071001
  3. AMPHOTERICIN B [Concomitant]
  4. OMEPRAZOLE [Concomitant]
  5. ALBUTEROL /00139501/ (SALBUTAMOL) [Concomitant]
  6. DOCUSATE (DOCUSATE) [Concomitant]
  7. SENNA /0142201/ (SENNA ALEXANDRINA) [Concomitant]
  8. INSULIN [Concomitant]
  9. CALCIUM CARBONATE (CALCIUM CARBONATE) [Concomitant]
  10. PRDNISONE (PREDNISONE) [Concomitant]
  11. METOCLOPRAMIDE (METOCLOPRAMIDE) [Concomitant]
  12. MAALOX /00082501/ (ALUMINIUM HYDROXIDE, MAGNESIUM HYDROXIDE) [Concomitant]
  13. TRAZODONE HCL [Concomitant]

REACTIONS (6)
  - ACTIVATED PARTIAL THROMBOPLASTIN TIME PROLONGED [None]
  - ALANINE AMINOTRANSFERASE INCREASED [None]
  - ASPARTATE AMINOTRANSFERASE INCREASED [None]
  - BLOOD ALKALINE PHOSPHATASE INCREASED [None]
  - BLOOD BILIRUBIN INCREASED [None]
  - PROTHROMBIN TIME PROLONGED [None]
